FAERS Safety Report 6821996-4 (Version None)
Quarter: 2010Q3

REPORT INFORMATION
  Report Type: 
  Country: None (occurrence: None)
  Receive Date: 20100708
  Receipt Date: 20100701
  Transmission Date: 20110219
  Serious: Yes (Hospitalization, Other)
  Sender: FDA-Public Use
  Company Number: US-ELI_LILLY_AND_COMPANY-US201007000291

PATIENT
  Sex: Female
  Weight: 138.32 kg

DRUGS (7)
  1. BYETTA [Suspect]
     Indication: TYPE 2 DIABETES MELLITUS
     Dosage: 5 UG, 2/D
     Route: 058
  2. BYETTA [Suspect]
     Dosage: 10 UG, 2/D
     Route: 058
  3. METROCLOPRAMIDE [Concomitant]
  4. LEXAPRO [Concomitant]
  5. PROGESTONE [Concomitant]
  6. COUMADIN [Concomitant]
     Dosage: 7.5 MG, DAILY (1/D)
  7. METFORMIN HCL [Concomitant]
     Dosage: 1000 MG, DAILY (1/D)

REACTIONS (13)
  - AGGRESSION [None]
  - BALANCE DISORDER [None]
  - BLOOD GLUCOSE DECREASED [None]
  - DYSPNOEA [None]
  - LIMB DISCOMFORT [None]
  - MUSCLE SPASMS [None]
  - PAIN [None]
  - PAIN IN EXTREMITY [None]
  - RHINORRHOEA [None]
  - THROMBOSIS [None]
  - TREMOR [None]
  - UPPER RESPIRATORY TRACT CONGESTION [None]
  - WEIGHT DECREASED [None]
